FAERS Safety Report 8515999-1 (Version None)
Quarter: 2012Q3

REPORT INFORMATION
  Report Type: 
  Country: None (occurrence: None)
  Receive Date: 20120717
  Receipt Date: 20120709
  Transmission Date: 20120928
  Serious: Yes (Hospitalization)
  Sender: FDA-Public Use
  Company Number: GB-TEVA-347545ISR

PATIENT
  Age: 70 Year
  Sex: Male

DRUGS (3)
  1. FOSAMAX [Suspect]
     Indication: OSTEOPOROSIS
     Route: 048
  2. FLUTICASONE PROPIONATE/SALMETEROL [Concomitant]
     Dosage: REDUCING
     Route: 055
  3. PREDNISOLONE [Suspect]
     Dosage: 2.5 MILLIGRAM;
     Route: 065

REACTIONS (1)
  - OSTEONECROSIS OF JAW [None]
